FAERS Safety Report 9484373 (Version 1)
Quarter: 2013Q3

REPORT INFORMATION
  Report Type: Spontaneous
  Country: US (occurrence: US)
  Receive Date: 20130828
  Receipt Date: 20130828
  Transmission Date: 20140515
  Serious: Yes (Hospitalization, Other)
  Sender: FDA-Public Use
  Company Number: US-AMGEN-KDL409882

PATIENT
  Age: 52 Year
  Sex: Female

DRUGS (1)
  1. ENBREL [Suspect]
     Indication: RHEUMATOID ARTHRITIS
     Dosage: 25 MG, 2 TIMES/WK
     Route: 058
     Dates: start: 20031101

REACTIONS (9)
  - Bradycardia [Unknown]
  - Transient ischaemic attack [Unknown]
  - Bladder disorder [Unknown]
  - Myocardial infarction [Unknown]
  - Headache [Recovered/Resolved]
  - Nasopharyngitis [Unknown]
  - Ear infection [Unknown]
  - Bronchitis [Unknown]
  - Injection site pain [Recovered/Resolved]
